FAERS Safety Report 5746213-8 (Version None)
Quarter: 2008Q2

REPORT INFORMATION
  Report Type: 
  Country: None (occurrence: None)
  Receive Date: 20080522
  Receipt Date: 20080512
  Transmission Date: 20081010
  Serious: Yes (Hospitalization, Other)
  Sender: FDA-Public Use
  Company Number: US-ROCHE-563708

PATIENT
  Age: 86 Year
  Sex: Female

DRUGS (9)
  1. BONIVA [Suspect]
     Indication: OSTEOPOROSIS
     Route: 065
  2. ALBUTEROL [Concomitant]
     Dosage: AS REQUIRED
  3. AZITHROMYCIN [Concomitant]
  4. LANOXIN [Concomitant]
  5. DILTIAZEM [Concomitant]
  6. FUROSEMIDE [Concomitant]
  7. NORTRIPTYLINE HCL [Concomitant]
  8. LORAZEPAM [Concomitant]
  9. WARFARIN SODIUM [Concomitant]

REACTIONS (2)
  - DIABETES MELLITUS [None]
  - KNEE OPERATION [None]
